FAERS Safety Report 6256352-3 (Version None)
Quarter: 2009Q3

REPORT INFORMATION
  Report Type: 
  Country: None (occurrence: None)
  Receive Date: 20090706
  Receipt Date: 20090624
  Transmission Date: 20100115
  Serious: Yes (Hospitalization, Other)
  Sender: FDA-Public Use
  Company Number: US-ROCHE-455330

PATIENT
  Sex: Female
  Weight: 59 kg

DRUGS (8)
  1. ACCUTANE [Suspect]
     Route: 048
     Dates: start: 19981006, end: 19990531
  2. ACCUTANE [Suspect]
     Route: 048
     Dates: start: 20001108, end: 20010301
  3. ACCUTANE [Suspect]
     Route: 048
     Dates: start: 20010401, end: 20010601
  4. ORTHO TRI-CYCLEN [Concomitant]
     Dosage: TAKEN AT TIME OF ISOTRETINOIN USE
  5. IRON [Concomitant]
     Indication: IRON DEFICIENCY ANAEMIA
     Route: 048
     Dates: start: 19981113
  6. ALDACTONE [Concomitant]
     Dates: start: 19981006
  7. BENTYL [Concomitant]
     Route: 048
  8. ZINC [Concomitant]
     Dates: start: 19990101

REACTIONS (22)
  - APPENDICITIS [None]
  - ARTHRALGIA [None]
  - BILIARY DYSKINESIA [None]
  - CHEILITIS [None]
  - CROHN'S DISEASE [None]
  - DEPRESSION [None]
  - DERMATITIS [None]
  - EYE INFECTION [None]
  - GASTROENTERITIS VIRAL [None]
  - GASTROINTESTINAL INJURY [None]
  - HYPOALBUMINAEMIA [None]
  - INFLAMMATORY BOWEL DISEASE [None]
  - INTESTINAL ANASTOMOSIS COMPLICATION [None]
  - INTESTINAL HAEMORRHAGE [None]
  - IRON DEFICIENCY ANAEMIA [None]
  - IRRITABLE BOWEL SYNDROME [None]
  - MICROCYTIC ANAEMIA [None]
  - OEDEMA PERIPHERAL [None]
  - PHARYNGITIS [None]
  - RECTAL HAEMORRHAGE [None]
  - SMALL INTESTINAL OBSTRUCTION [None]
  - UPPER RESPIRATORY TRACT INFECTION [None]
